FAERS Safety Report 20495655 (Version 3)
Quarter: 2022Q1

REPORT INFORMATION
  Report Type: Report from Study
  Country: CA (occurrence: CA)
  Receive Date: 20220221
  Receipt Date: 20220314
  Transmission Date: 20220423
  Serious: Yes (Hospitalization, Other)
  Sender: FDA-Public Use
  Company Number: CA-KOREA IPSEN Pharma-2022-04026

PATIENT
  Age: 70 Year
  Sex: Female

DRUGS (13)
  1. LANREOTIDE ACETATE [Suspect]
     Active Substance: LANREOTIDE ACETATE
     Indication: Neuroendocrine tumour
     Route: 058
     Dates: start: 20211219
  2. PMS AMITRIPTYLINE [Concomitant]
  3. PMS CANDESARTAN [Concomitant]
  4. FLUOXETINE HYDROCHLORIDE [Concomitant]
     Active Substance: FLUOXETINE HYDROCHLORIDE
  5. PANTOPRAZOLE SODIUM [Concomitant]
     Active Substance: PANTOPRAZOLE SODIUM
  6. AURO ROSUVASTATIN [Concomitant]
  7. HYDROCHLOROTHIAZIDE [Concomitant]
     Active Substance: HYDROCHLOROTHIAZIDE
  8. TEVA DILTIAZEM HCL ER [Concomitant]
  9. LORAZEPAM [Concomitant]
     Active Substance: LORAZEPAM
  10. ATIVAN [Concomitant]
     Active Substance: LORAZEPAM
  11. MORPHINE [Concomitant]
     Active Substance: MORPHINE
     Dosage: RARE
  12. SPIRIVA [Concomitant]
     Active Substance: TIOTROPIUM BROMIDE MONOHYDRATE
  13. AURO PREGABALIN [Concomitant]

REACTIONS (6)
  - Dyspnoea [Not Recovered/Not Resolved]
  - Hypoxia [Not Recovered/Not Resolved]
  - Peripheral swelling [Recovering/Resolving]
  - Peripheral swelling [Recovering/Resolving]
  - Flushing [Unknown]
  - Emotional distress [Not Recovered/Not Resolved]

NARRATIVE: CASE EVENT DATE: 20220201
